FAERS Safety Report 25891944 (Version 2)
Quarter: 2025Q4

REPORT INFORMATION
  Report Type: Spontaneous
  Country: US (occurrence: US)
  Receive Date: 20251007
  Receipt Date: 20251117
  Transmission Date: 20260118
  Serious: No
  Sender: SANOFI AVENTIS
  Company Number: US-SANOFI-02677421

PATIENT
  Age: 61 Year
  Sex: Female

DRUGS (8)
  1. DUPIXENT [Suspect]
     Active Substance: DUPILUMAB
     Indication: Eczema
     Dosage: 300 MG, QOW
     Route: 058
     Dates: start: 20240627
  2. DUPIXENT [Suspect]
     Active Substance: DUPILUMAB
     Indication: Pruritus
  3. EFFEXOR [Concomitant]
     Active Substance: VENLAFAXINE HYDROCHLORIDE
     Indication: Anxiety
     Dosage: 112.5MG, QD
     Route: 048
  4. LIPITOR [Concomitant]
     Active Substance: ATORVASTATIN CALCIUM
     Indication: Blood cholesterol
     Dosage: 20MG, QD
     Route: 048
  5. QUETIAPINE [Concomitant]
     Active Substance: QUETIAPINE
     Indication: Anxiety
     Dosage: 400MG, QD
     Route: 048
     Dates: start: 200207
  6. QUETIAPINE [Concomitant]
     Active Substance: QUETIAPINE
     Indication: Tachyphrenia
  7. BUSPIRONE [Concomitant]
     Active Substance: BUSPIRONE HYDROCHLORIDE
     Indication: Anxiety
     Dosage: 60 MG, TID
     Route: 048
  8. DOCUSATE SODIUM [Concomitant]
     Active Substance: DOCUSATE SODIUM
     Indication: Constipation
     Dosage: UNK

REACTIONS (3)
  - Capillaritis [Not Recovered/Not Resolved]
  - Eczema [Unknown]
  - Drug ineffective for unapproved indication [Unknown]

NARRATIVE: CASE EVENT DATE: 20240627
